FAERS Safety Report 24756973 (Version 2)
Quarter: 2024Q4

REPORT INFORMATION
  Report Type: Spontaneous
  Country: PL (occurrence: PL)
  Receive Date: 20241220
  Receipt Date: 20241230
  Transmission Date: 20250114
  Serious: Yes (Other)
  Sender: GALDERMA
  Company Number: PL-GALDERMA-PL2024018224

PATIENT

DRUGS (8)
  1. CLOBETASOL PROPIONATE [Suspect]
     Active Substance: CLOBETASOL PROPIONATE
     Indication: Skin lesion
     Dosage: 1 DOSAGE FORM, TWICE DAILY
     Route: 061
  2. CLOBETASOL PROPIONATE [Suspect]
     Active Substance: CLOBETASOL PROPIONATE
     Indication: Pustule
  3. AMOXICILLIN\CLAVULANIC ACID [Concomitant]
     Active Substance: AMOXICILLIN\CLAVULANIC ACID
     Indication: Skin lesion
     Dosage: 1 GRAM, TWO TIMES A DAY
  4. AMOXICILLIN\CLAVULANIC ACID [Concomitant]
     Active Substance: AMOXICILLIN\CLAVULANIC ACID
     Indication: Pustule
  5. PREDNISONE [Concomitant]
     Active Substance: PREDNISONE
     Indication: Skin lesion
     Dosage: 20 MILLIGRAM, DAILY
     Route: 048
  6. PREDNISONE [Concomitant]
     Active Substance: PREDNISONE
     Indication: Pustule
  7. RUPATADINE [Concomitant]
     Active Substance: RUPATADINE
     Indication: Skin lesion
     Dosage: 1 DOSAGE FORM, ONCE DAILY
  8. RUPATADINE [Concomitant]
     Active Substance: RUPATADINE
     Indication: Pustule

REACTIONS (5)
  - Tonsillar hypertrophy [Unknown]
  - Pyrexia [Unknown]
  - Skin lesion [Recovered/Resolved]
  - Condition aggravated [Recovered/Resolved]
  - Intentional product use issue [Recovered/Resolved]
